FAERS Safety Report 12250348 (Version 1)
Quarter: 2016Q2

REPORT INFORMATION
  Report Type: Spontaneous
  Country: ES (occurrence: ES)
  Receive Date: 20160408
  Receipt Date: 20160408
  Transmission Date: 20160815
  Serious: Yes (Other)
  Sender: FDA-Public Use
  Company Number: ES-ROXANE LABORATORIES, INC.-2016-RO-00610RO

PATIENT
  Age: 54 Year
  Sex: Male

DRUGS (5)
  1. LITHIUM CARBONATE CAPSULES USP, 150 MG [Suspect]
     Active Substance: LITHIUM CARBONATE
     Indication: BIPOLAR I DISORDER
     Dosage: 1200 MG
     Route: 065
  2. QUETIAPINE FUMARATE 50 MG, 100 MG, 200 MG, 300 MG, AND 400 MG [Suspect]
     Active Substance: QUETIAPINE FUMARATE
     Indication: BIPOLAR I DISORDER
     Dosage: 600 MG
     Route: 065
  3. RISPERIDONE. [Suspect]
     Active Substance: RISPERIDONE
     Indication: BIPOLAR I DISORDER
     Dosage: 6 MG
     Route: 065
  4. QUETIAPINE FUMARATE 50 MG, 100 MG, 200 MG, 300 MG, AND 400 MG [Suspect]
     Active Substance: QUETIAPINE FUMARATE
     Dosage: 1000 MG
     Route: 065
  5. CLONAZEPAM. [Suspect]
     Active Substance: CLONAZEPAM
     Indication: BIPOLAR I DISORDER
     Dosage: 2 MG
     Route: 065

REACTIONS (2)
  - Dementia [Recovered/Resolved]
  - Encephalopathy [Recovered/Resolved]
